FAERS Safety Report 4376687-9 (Version None)
Quarter: 2004Q2

REPORT INFORMATION
  Report Type: 
  Country: None (occurrence: None)
  Receive Date: 20040608
  Receipt Date: 20040526
  Transmission Date: 20050107
  Serious: Yes (Hospitalization)
  Sender: FDA-Public Use
  Company Number: 04P-163-0262112-00

PATIENT
  Age: 63 Year
  Sex: Female
  Weight: 111.1313 kg

DRUGS (1)
  1. HUMIRA 40 MG/ 0.8 ML PRE-FILLED SYRINGE (HUMIRA) (ADLAMUMAB) [Suspect]
     Indication: RHEUMATOID ARTHRITIS
     Dosage: 40 MG, 1IN 2 WEK, SUBCUTANEOUS
     Route: 058
     Dates: start: 20030101, end: 20040518

REACTIONS (3)
  - BURSITIS [None]
  - LOWER EXTREMITY MASS [None]
  - RHEUMATOID NODULE [None]
